FAERS Safety Report 15075291 (Version 1)
Quarter: 2018Q2

REPORT INFORMATION
  Report Type: Spontaneous
  Country: US (occurrence: US)
  Receive Date: 20180627
  Receipt Date: 20180627
  Transmission Date: 20180711
  Serious: Yes (Hospitalization)
  Sender: FDA-Public Use
  Company Number: US-SAOL THERAPEUTICS-2018SAO00280

PATIENT
  Sex: Female

DRUGS (2)
  1. BACLOFEN. [Suspect]
     Active Substance: BACLOFEN
     Indication: COMPLEX REGIONAL PAIN SYNDROME
  2. BACLOFEN. [Suspect]
     Active Substance: BACLOFEN
     Indication: PAIN
     Dosage: 193.9 ?G/DAY- FLEX
     Route: 037

REACTIONS (5)
  - Chest discomfort [Unknown]
  - Headache [Unknown]
  - Asthenia [Unknown]
  - Anxiety [Unknown]
  - Off label use [Not Recovered/Not Resolved]
